FAERS Safety Report 4950893-4 (Version None)
Quarter: 2006Q1

REPORT INFORMATION
  Report Type: 
  Country: None (occurrence: None)
  Receive Date: 20060322
  Receipt Date: 20021101
  Transmission Date: 20060701
  Serious: Yes (Other)
  Sender: FDA-Public Use
  Company Number: DE-BRISTOL-MYERS SQUIBB COMPANY-13309208

PATIENT
  Age: 24 Year
  Sex: Male
  Weight: 95 kg

DRUGS (16)
  1. REYATAZ [Suspect]
     Indication: HIV INFECTION
     Dates: start: 20030801
  2. SUSTIVA [Suspect]
     Indication: HIV INFECTION
     Dates: start: 19990701
  3. VIDEX [Suspect]
     Indication: HIV INFECTION
     Dates: start: 19980401, end: 19990101
  4. ZERIT [Suspect]
     Indication: HIV INFECTION
     Dates: start: 19970701, end: 19990101
  5. RITONAVIR [Concomitant]
     Indication: HIV INFECTION
     Dates: start: 19980401, end: 20040101
  6. ZIDOVUDINE [Concomitant]
     Indication: HIV INFECTION
     Dates: start: 19901201, end: 19970101
  7. ZALCITABINE [Concomitant]
     Indication: HIV INFECTION
     Dates: start: 19930701
  8. LAMIVUDINE [Concomitant]
     Indication: HIV INFECTION
     Dates: start: 19950201
  9. SAQUINAVIR [Concomitant]
     Indication: HIV INFECTION
     Dates: start: 19960201, end: 19990101
  10. INDINIVIR SULFATE [Concomitant]
     Indication: HIV INFECTION
     Dates: start: 19960801
  11. NELFINAVIR [Concomitant]
     Indication: HIV INFECTION
     Dates: start: 19970701
  12. AMPRENAVIR [Concomitant]
     Indication: HIV INFECTION
     Dates: start: 19990701
  13. ABACAVIR [Concomitant]
     Indication: HIV INFECTION
     Dates: start: 19990701
  14. LOPINAVIR [Concomitant]
     Indication: HIV INFECTION
     Dates: start: 20010601, end: 20030801
  15. CO-TRIMOXAZOLE [Concomitant]
     Dates: start: 19901201, end: 20010601
  16. IMMUNE GLOBULIN INTRAVENOUS (HUMAN) [Concomitant]
     Dates: start: 19901201, end: 20010601

REACTIONS (11)
  - FAT TISSUE INCREASED [None]
  - HEPATITIS C [None]
  - HYPERCHOLESTEROLAEMIA [None]
  - HYPERTENSION [None]
  - HYPOREFLEXIA [None]
  - LIPOATROPHY [None]
  - POLYNEUROPATHY [None]
  - RHINITIS [None]
  - SALIVARY GLAND CYST [None]
  - THROMBOCYTOPENIA [None]
  - WEIGHT INCREASED [None]
